FAERS Safety Report 5463443-3 (Version None)
Quarter: 2007Q3

REPORT INFORMATION
  Report Type: 
  Country: None (occurrence: None)
  Receive Date: 20070920
  Receipt Date: 20070907
  Transmission Date: 20080115
  Serious: Yes (Other)
  Sender: FDA-Public Use
  Company Number: US-ELI_LILLY_AND_COMPANY-US200709001329

PATIENT
  Sex: Female

DRUGS (1)
  1. PROZAC [Suspect]

REACTIONS (1)
  - ASPIRATION [None]
